FAERS Safety Report 4289277-3 (Version None)
Quarter: 2004Q1

REPORT INFORMATION
  Report Type: 
  Country: None (occurrence: None)
  Receive Date: 20040210
  Receipt Date: 20040107
  Transmission Date: 20041129
  Serious: Yes (Hospitalization, Other)
  Sender: FDA-Public Use
  Company Number: AU-BRISTOL-MYERS SQUIBB COMPANY-12471769

PATIENT
  Age: 62 Year
  Sex: Female
  Weight: 68 kg

DRUGS (12)
  1. MAXIPIME [Suspect]
     Indication: PYREXIA
     Route: 042
     Dates: start: 20030909, end: 20030920
  2. GENTAMICIN [Suspect]
     Indication: SEPSIS
     Route: 042
     Dates: start: 20030909, end: 20030912
  3. OLANZAPINE [Concomitant]
     Dates: start: 20030909
  4. ALLOPURINOL [Concomitant]
     Dates: start: 20030909
  5. SOMAC [Concomitant]
     Dates: start: 20030909
  6. ACETAMINOPHEN [Concomitant]
     Dates: start: 20030909
  7. COLOXYL + SENNA [Concomitant]
  8. TROPISETRON [Concomitant]
     Dosage: 1 DOSE
     Route: 042
     Dates: start: 20030912
  9. CYCLOPHOSPHAMIDE [Concomitant]
     Dates: start: 20030912
  10. DOXORUBICIN HCL [Concomitant]
     Dates: start: 20030912
  11. VINCRISTINE [Concomitant]
     Dates: start: 20030912
  12. PREDNISONE [Concomitant]
     Dates: start: 20030912

REACTIONS (4)
  - CONVULSION [None]
  - HAEMODIALYSIS [None]
  - NEUROPATHY [None]
  - RENAL FAILURE [None]
